FAERS Safety Report 5813805-7 (Version None)
Quarter: 2008Q3

REPORT INFORMATION
  Report Type: 
  Country: None (occurrence: None)
  Receive Date: 20080717
  Receipt Date: 20080709
  Transmission Date: 20090109
  Serious: Yes (Other)
  Sender: FDA-Public Use
  Company Number: US-AVENTIS-200814159US

PATIENT
  Age: 76 Year
  Sex: Female

DRUGS (2)
  1. LANTUS [Suspect]
     Route: 058
  2. LOPRESSOR [Concomitant]
     Dosage: DOSE: UNK

REACTIONS (3)
  - DIABETIC COMA [None]
  - HYPOGLYCAEMIA [None]
  - MYOCARDIAL INFARCTION [None]
